FAERS Safety Report 18479980 (Version 1)
Quarter: 2020Q4

REPORT INFORMATION
  Report Type: Spontaneous
  Country: US (occurrence: US)
  Receive Date: 20201108
  Receipt Date: 20201108
  Transmission Date: 20210114
  Serious: No
  Sender: FDA-Public Use
  Company Number: None

PATIENT
  Age: 58 Year
  Sex: Female
  Weight: 72 kg

DRUGS (14)
  1. REPATHA [Suspect]
     Active Substance: EVOLOCUMAB
     Indication: TYPE 2 DIABETES MELLITUS
     Dosage: ?          QUANTITY:2 INJECTION(S);OTHER FREQUENCY:EVERY 2 WEEKS;?
     Route: 058
     Dates: start: 20191116, end: 20200916
  2. NEURONTIN [Concomitant]
     Active Substance: GABAPENTIN
  3. REPATHA [Suspect]
     Active Substance: EVOLOCUMAB
     Indication: BLOOD CHOLESTEROL INCREASED
     Dosage: ?          QUANTITY:2 INJECTION(S);OTHER FREQUENCY:EVERY 2 WEEKS;?
     Route: 058
     Dates: start: 20191116, end: 20200916
  4. ESTROGEN PILLS [Concomitant]
  5. TRESIBA [Concomitant]
     Active Substance: INSULIN DEGLUDEC
  6. METAMUCIL [Concomitant]
     Active Substance: PLANTAGO SEED
  7. EFFEXOR [Concomitant]
     Active Substance: VENLAFAXINE HYDROCHLORIDE
  8. METROPROLOL [Concomitant]
     Active Substance: METOPROLOL
  9. COLACE STOOL SOFTENER [Concomitant]
  10. LANSOPRAZOLE. [Concomitant]
     Active Substance: LANSOPRAZOLE
  11. REPATHA [Concomitant]
     Active Substance: EVOLOCUMAB
  12. XANAX [Concomitant]
     Active Substance: ALPRAZOLAM
  13. SLOW FE IRON [Concomitant]
  14. LISINIPRIL [Concomitant]
     Active Substance: LISINOPRIL

REACTIONS (1)
  - Arthralgia [None]

NARRATIVE: CASE EVENT DATE: 20201108
